FAERS Safety Report 9803294 (Version 2)
Quarter: 2014Q1

REPORT INFORMATION
  Report Type: Spontaneous
  Country: US (occurrence: US)
  Receive Date: 20140108
  Receipt Date: 20140219
  Transmission Date: 20141002
  Serious: Yes (Other)
  Sender: FDA-Public Use
  Company Number: US-ASTELLAS-2014US000011

PATIENT
  Age: 61 Year
  Sex: Female
  Weight: 84 kg

DRUGS (14)
  1. PROGRAF [Suspect]
     Indication: RENAL TRANSPLANT
     Dosage: 2 MG IN AM / 3 MG IN PM
     Route: 048
     Dates: start: 200807
  2. BARACLUDE [Concomitant]
     Indication: LIVER DISORDER
     Dosage: 0.5 MG, QOD
     Route: 048
  3. DIAZEPAM [Concomitant]
     Indication: RESTLESS LEGS SYNDROME
     Dosage: 10 MG, QHS
     Route: 048
     Dates: start: 2005
  4. UNSPECIFIED TRADITIONAL MEDICINE [Concomitant]
     Indication: IRON DEFICIENCY ANAEMIA
     Dosage: 65 MG, UID/QD
     Route: 048
     Dates: start: 2008
  5. PRAMIPEXOLE [Concomitant]
     Indication: RESTLESS LEGS SYNDROME
     Dosage: 1 MG, QHS
     Route: 048
     Dates: start: 2005
  6. LUNESTA [Concomitant]
     Indication: INSOMNIA
     Dosage: 2 MG, QHS
     Route: 048
     Dates: start: 201309
  7. MYFORTIC [Concomitant]
     Indication: RENAL TRANSPLANT
     Dosage: 180 MG, BID
     Route: 048
     Dates: start: 2008
  8. FUROSEMIDE [Concomitant]
     Indication: DIURETIC THERAPY
     Dosage: 20 MG, UID/QD IN AM
     Route: 048
     Dates: start: 1993
  9. PREDNISONE [Concomitant]
     Indication: PRODUCT USED FOR UNKNOWN INDICATION
     Dosage: 5 MG, UID/QD IN THE AM
     Route: 048
     Dates: start: 2008
  10. CALCITRIOL [Concomitant]
     Indication: HYPOCALCAEMIA
     Dosage: 0.25 UG, 3XWEEKLY
     Route: 048
  11. WARFARIN [Concomitant]
     Indication: ANTICOAGULANT THERAPY
     Dosage: 5 MG, UID/QD
     Route: 048
  12. LIPITOR [Concomitant]
     Indication: BLOOD CHOLESTEROL INCREASED
     Dosage: 20 MG, UID/QD
     Route: 048
     Dates: start: 201311
  13. FOSAMAX [Concomitant]
     Indication: OSTEOPOROSIS
     Dosage: 35 MG, WEEKLY
     Route: 048
  14. VITAMIN D                          /00107901/ [Concomitant]
     Indication: VITAMIN D DEFICIENCY
     Dosage: 400 MG, BID
     Route: 048

REACTIONS (1)
  - Hepatomegaly [Not Recovered/Not Resolved]
